FAERS Safety Report 4305417-1 (Version None)
Quarter: 2004Q1

REPORT INFORMATION
  Report Type: 
  Country: None (occurrence: None)
  Receive Date: 20040226
  Receipt Date: 20031104
  Transmission Date: 20041129
  Serious: No
  Sender: FDA-Public Use
  Company Number: US-BRISTOL-MYERS SQUIBB COMPANY-12426912

PATIENT
  Sex: Female

DRUGS (4)
  1. TAXOL [Suspect]
     Indication: OVARIAN CANCER
     Dosage: DOSE = 280-289 MG  CYCLES COMPLETED
     Route: 042
     Dates: start: 20030422, end: 20030422
  2. CARBOPLATIN [Concomitant]
     Indication: OVARIAN CANCER
     Dates: start: 20030422, end: 20020422
  3. ZOLOFT [Concomitant]
  4. MULTI-VITAMIN [Concomitant]

REACTIONS (1)
  - MADAROSIS [None]
